FAERS Safety Report 11103561 (Version 1)
Quarter: 2015Q2

REPORT INFORMATION
  Report Type: Report from Study
  Country: MX (occurrence: MX)
  Receive Date: 20150511
  Receipt Date: 20150511
  Transmission Date: 20150821
  Serious: Yes (Other)
  Sender: FDA-Public Use
  Company Number: MX-SA-2015SA062109

PATIENT
  Sex: Female
  Weight: 55 kg

DRUGS (1)
  1. LANTUS [Suspect]
     Active Substance: INSULIN GLARGINE
     Dosage: BOX WITH 1 AMPOULE WITH 10 ML OF 100 IU/ML
     Route: 058
     Dates: start: 2013

REACTIONS (2)
  - Eye operation [Unknown]
  - Hyperglycaemia [Unknown]
